FAERS Safety Report 9397512 (Version 1)
Quarter: 2013Q3

REPORT INFORMATION
  Report Type: Spontaneous
  Country: US (occurrence: US)
  Receive Date: 20130712
  Receipt Date: 20130712
  Transmission Date: 20140515
  Serious: Yes (Other)
  Sender: FDA-Public Use
  Company Number: US-JNJFOC-20130700977

PATIENT
  Sex: Male

DRUGS (1)
  1. INVEGA SUSTENNA [Suspect]
     Indication: SCHIZOPHRENIA
     Route: 030
     Dates: start: 2008

REACTIONS (5)
  - Schizophrenia [Not Recovered/Not Resolved]
  - Homicidal ideation [Unknown]
  - Malaise [Not Recovered/Not Resolved]
  - Malnutrition [Not Recovered/Not Resolved]
  - Drug ineffective [Not Recovered/Not Resolved]
